FAERS Safety Report 12133599 (Version 1)
Quarter: 2016Q1

REPORT INFORMATION
  Report Type: Spontaneous
  Country: US (occurrence: US)
  Receive Date: 20160301
  Receipt Date: 20160301
  Transmission Date: 20160526
  Serious: No
  Sender: FDA-Public Use
  Company Number: US-PFIZER INC-2016091975

PATIENT
  Sex: Female

DRUGS (8)
  1. MEGESTROL [Suspect]
     Active Substance: MEGESTROL
     Dosage: UNK
  2. CELEBREX [Suspect]
     Active Substance: CELECOXIB
     Dosage: UNK
  3. SUDAFED [Suspect]
     Active Substance: PSEUDOEPHEDRINE HYDROCHLORIDE
     Dosage: UNK
  4. DOXYCYCLINE HYCLATE. [Suspect]
     Active Substance: DOXYCYCLINE HYCLATE
     Dosage: UNK
  5. ESTROGENS ESTERIFIED [Suspect]
     Active Substance: ESTROGENS, ESTERIFIED
     Dosage: UNK
  6. NAPROXEN. [Suspect]
     Active Substance: NAPROXEN
     Dosage: UNK
  7. OMEPRAZOLE. [Suspect]
     Active Substance: OMEPRAZOLE
     Dosage: UNK
  8. ANASTROZOLE. [Suspect]
     Active Substance: ANASTROZOLE
     Dosage: UNK

REACTIONS (1)
  - Drug hypersensitivity [Unknown]
